FAERS Safety Report 9406294 (Version 1)
Quarter: 2013Q3

REPORT INFORMATION
  Report Type: Spontaneous
  Country: AR (occurrence: AR)
  Receive Date: 20130717
  Receipt Date: 20130717
  Transmission Date: 20140515
  Serious: Yes (Other)
  Sender: FDA-Public Use
  Company Number: AR-ABBOTT-13P-007-1119691-00

PATIENT
  Age: 64 Year
  Sex: Male

DRUGS (2)
  1. HUMIRA [Suspect]
     Indication: PSORIATIC ARTHROPATHY
     Route: 058
     Dates: start: 20110517
  2. UNPECIFIED MEDICATION [Concomitant]
     Indication: VARICOSE VEIN
     Dosage: FOAM

REACTIONS (1)
  - Bleeding varicose vein [Unknown]
